FAERS Safety Report 17485123 (Version 1)
Quarter: 2020Q1

REPORT INFORMATION
  Report Type: Spontaneous
  Country: US (occurrence: US)
  Receive Date: 20200302
  Receipt Date: 20200302
  Transmission Date: 20200409
  Serious: No
  Sender: FDA-Public Use
  Company Number: US-GE HEALTHCARE LIFE SCIENCES-2020CSU000717

PATIENT
  Age: 54 Year
  Sex: Female

DRUGS (15)
  1. DIPHENHYDRAMINE. [Concomitant]
     Active Substance: DIPHENHYDRAMINE
  2. CARVEDILOL. [Concomitant]
     Active Substance: CARVEDILOL
     Route: 065
  3. ATENOLOL. [Concomitant]
     Active Substance: ATENOLOL
     Route: 055
  4. CARAFATE [Concomitant]
     Active Substance: SUCRALFATE
     Route: 065
  5. INSULIN [Concomitant]
     Active Substance: INSULIN NOS
     Route: 065
  6. PREGABALIN. [Concomitant]
     Active Substance: PREGABALIN
  7. MULTIVITAMIN [Concomitant]
     Active Substance: VITAMINS
     Route: 065
  8. MYOVIEW [Suspect]
     Active Substance: TECHNETIUM TC-99M TETROFOSMIN
     Indication: CARDIAC FAILURE CONGESTIVE
  9. HEPARIN [Concomitant]
     Active Substance: HEPARIN SODIUM
     Route: 042
  10. ACETAMINOPHEN. [Concomitant]
     Active Substance: ACETAMINOPHEN
  11. COLACE [Concomitant]
     Active Substance: DOCUSATE SODIUM
     Route: 065
  12. MYOVIEW [Suspect]
     Active Substance: TECHNETIUM TC-99M TETROFOSMIN
     Indication: CARDIAC IMAGING PROCEDURE
     Dosage: 1177.71 MBQ (31.83 MCI), SINGLE
     Route: 065
     Dates: start: 20200127, end: 20200127
  13. EPOETIN [Concomitant]
     Active Substance: ERYTHROPOIETIN
     Route: 065
  14. HYDROCHLOROTHIAZIDE. [Concomitant]
     Active Substance: HYDROCHLOROTHIAZIDE
  15. ONDANSETRON [Concomitant]
     Active Substance: ONDANSETRON
     Route: 065

REACTIONS (2)
  - No adverse event [Recovered/Resolved]
  - Radioisotope scan abnormal [Recovered/Resolved]

NARRATIVE: CASE EVENT DATE: 20200127
